FAERS Safety Report 7557281-5 (Version None)
Quarter: 2011Q2

REPORT INFORMATION
  Report Type: 
  Country: None (occurrence: None)
  Receive Date: 20110620
  Receipt Date: 20080512
  Transmission Date: 20111010
  Serious: Yes (Death, Other)
  Sender: FDA-Public Use
  Company Number: PHHO2007BR15689

PATIENT
  Age: 81 Year
  Sex: Male

DRUGS (1)
  1. FORMOTEROL FUMARATE [Suspect]
     Route: 048

REACTIONS (7)
  - RESPIRATORY FAILURE [None]
  - CARDIAC ARREST [None]
  - HYPERTENSION [None]
  - ATRIAL FIBRILLATION [None]
  - ARRHYTHMIA [None]
  - DIABETES MELLITUS [None]
  - ACUTE MYOCARDIAL INFARCTION [None]
